FAERS Safety Report 9678729 (Version 1)
Quarter: 2013Q4

REPORT INFORMATION
  Report Type: Spontaneous
  Country: US (occurrence: US)
  Receive Date: 20131108
  Receipt Date: 20131108
  Transmission Date: 20140711
  Serious: No
  Sender: FDA-Public Use
  Company Number: US-PFIZER INC-2013318049

PATIENT
  Age: 51 Year
  Sex: Female
  Weight: 74.83 kg

DRUGS (7)
  1. LYRICA [Suspect]
     Indication: DIABETIC NEUROPATHY
     Dosage: 75 MG, 2X/DAY
     Dates: start: 2013
  2. DOXEPIN HCL [Interacting]
     Indication: BIPOLAR DISORDER
     Dosage: 150 MG, 2X/DAY
  3. MORPHINE SULFATE [Interacting]
     Indication: PAIN
     Dosage: 60 MG, 2X/DAY
     Route: 048
  4. MORPHINE SULFATE [Interacting]
     Indication: PAIN
     Dosage: 30 MG, 3X/DAY
     Route: 048
  5. BUSPAR [Interacting]
     Indication: BIPOLAR DISORDER
     Dosage: 30 MG, 2X/DAY
  6. KLONOPIN [Interacting]
     Indication: BIPOLAR DISORDER
     Dosage: 2 MG, 2X/DAY
  7. METFORMIN [Concomitant]
     Indication: DIABETES MELLITUS
     Dosage: 500 MG, 2X/DAY

REACTIONS (2)
  - Nightmare [Unknown]
  - Drug interaction [Unknown]
